FAERS Safety Report 16440681 (Version 1)
Quarter: 2019Q2

REPORT INFORMATION
  Report Type: Spontaneous
  Country: US (occurrence: US)
  Receive Date: 20190617
  Receipt Date: 20190617
  Transmission Date: 20190711
  Serious: No
  Sender: FDA-Public Use
  Company Number: US-GALDERMA-US18030865

PATIENT
  Sex: Female

DRUGS (1)
  1. DIFFERIN GEL [Suspect]
     Active Substance: ADAPALENE
     Indication: ACNE
     Dosage: 0.1%
     Route: 061

REACTIONS (6)
  - Acne [Unknown]
  - Product use in unapproved indication [Recovered/Resolved]
  - Dry skin [Unknown]
  - Underdose [Recovered/Resolved]
  - Skin exfoliation [Unknown]
  - Inappropriate schedule of product administration [Recovered/Resolved]
